FAERS Safety Report 5597858-X (Version None)
Quarter: 2007Q4

REPORT INFORMATION
  Report Type: 
  Country: None (occurrence: None)
  Receive Date: 20071221
  Receipt Date: 20071019
  Transmission Date: 20080405
  Serious: Yes (Other)
  Sender: FDA-Public Use
  Company Number: US200710005011

PATIENT
  Age: 54 Year
  Sex: Male

DRUGS (1)
  1. HUMULIN NPH(HUMAN INSULIN (RDNA ORIGIN) NPH) VIAL [Suspect]
     Dates: start: 19580101

REACTIONS (3)
  - BLOOD GLUCOSE DECREASED [None]
  - BLOOD GLUCOSE INCREASED [None]
  - LOSS OF CONSCIOUSNESS [None]
